FAERS Safety Report 23646556 (Version 1)
Quarter: 2024Q1

REPORT INFORMATION
  Report Type: Spontaneous
  Country: JP (occurrence: None)
  Receive Date: 20240319
  Receipt Date: 20240319
  Transmission Date: 20240410
  Serious: Yes (Other)
  Sender: FDA-Public Use
  Company Number: JP-NATCOUSA-2024-NATCOUSA-000190

PATIENT
  Age: 30 Year
  Sex: Male

DRUGS (2)
  1. LANSOPRAZOLE [Suspect]
     Active Substance: LANSOPRAZOLE
     Indication: Peptic ulcer
  2. ESOMEPRAZOLE [Suspect]
     Active Substance: ESOMEPRAZOLE
     Indication: Peptic ulcer

REACTIONS (1)
  - Gastric ulcer haemorrhage [Recovered/Resolved]
